FAERS Safety Report 17347304 (Version 3)
Quarter: 2020Q3

REPORT INFORMATION
  Report Type: Report from Study
  Country: FR (occurrence: FR)
  Receive Date: 20200130
  Receipt Date: 20200915
  Transmission Date: 20201102
  Serious: Yes (Hospitalization)
  Sender: FDA-Public Use
  Company Number: NVSC2019FR056324

PATIENT
  Age: 66 Year
  Sex: Female
  Weight: 41.5 kg

DRUGS (6)
  1. HDM201 [Suspect]
     Active Substance: SIREMADLIN
     Indication: COLORECTAL CANCER METASTATIC
     Dosage: 40 MG, QD, ON DAY 1 AND DAY 8 OF EACH CYCLE
     Route: 048
     Dates: start: 20191107, end: 20191205
  2. SERESTA [Concomitant]
     Active Substance: OXAZEPAM
     Indication: ANXIETY
     Dosage: 10 MG
     Route: 048
     Dates: start: 201912
  3. TIORFAN [Concomitant]
     Active Substance: RACECADOTRIL
     Indication: DIARRHOEA
     Dosage: 100 MG
     Route: 048
     Dates: start: 201912
  4. TRAMETINIB [Suspect]
     Active Substance: TRAMETINIB
     Indication: COLORECTAL CANCER METASTATIC
     Dosage: 1.5 MG, QD
     Route: 048
     Dates: start: 20191107, end: 20191210
  5. SPASFON [Concomitant]
     Indication: PAIN
     Dosage: UNK
     Route: 048
     Dates: start: 201912
  6. IMODIUM [Concomitant]
     Active Substance: LOPERAMIDE HYDROCHLORIDE
     Indication: DIARRHOEA
     Dosage: 2 MG
     Route: 048
     Dates: start: 201912

REACTIONS (1)
  - Tuberculosis [Not Recovered/Not Resolved]

NARRATIVE: CASE EVENT DATE: 20191126
